FAERS Safety Report 8572505-3 (Version None)
Quarter: 2012Q3

REPORT INFORMATION
  Report Type: 
  Country: None (occurrence: None)
  Receive Date: 20120806
  Receipt Date: 20120731
  Transmission Date: 20120928
  Serious: Yes (Life-Threatening)
  Sender: FDA-Public Use
  Company Number: FR-ASTRAZENECA-2012SE54243

PATIENT
  Age: 20591 Day
  Sex: Female

DRUGS (6)
  1. DIPRIVAN [Suspect]
     Indication: INDUCTION OF ANAESTHESIA
     Dosage: ONE SINGLE ADMINISTRATION
     Route: 042
     Dates: start: 20111124
  2. KETAMINE HCL [Suspect]
     Indication: INDUCTION OF ANAESTHESIA
     Dosage: ONE SINGLE ADMINISTRATION
     Route: 042
     Dates: start: 20111124
  3. ANTI-HISTAMIC DRUGS [Concomitant]
  4. AUGMENTIN '500' [Suspect]
     Route: 042
     Dates: start: 20111124
  5. SUFENTANIL CITRATE [Suspect]
     Indication: INDUCTION OF ANAESTHESIA
     Dosage: ONE SINGLE ADMINISTRATION
     Route: 042
     Dates: start: 20111124
  6. NIMBEX [Suspect]
     Indication: INDUCTION OF ANAESTHESIA
     Dosage: ONE SINGLE ADMINISTRATION
     Route: 042
     Dates: start: 20111124

REACTIONS (1)
  - ANAPHYLACTIC SHOCK [None]
